FAERS Safety Report 5863230-8 (Version None)
Quarter: 2008Q3

REPORT INFORMATION
  Report Type: 
  Country: None (occurrence: None)
  Receive Date: 20080828
  Receipt Date: 20080826
  Transmission Date: 20090109
  Serious: Yes (Other)
  Sender: FDA-Public Use
  Company Number: US-ASTRAZENECA-2008UW17445

PATIENT

DRUGS (3)
  1. CRESTOR [Suspect]
     Route: 048
  2. LYRICA [Suspect]
     Dosage: 150 MG
     Route: 048
  3. LYRICA [Suspect]
     Dosage: 300 MG
     Route: 048

REACTIONS (2)
  - HEPATIC FAILURE [None]
  - RENAL FAILURE [None]
